FAERS Safety Report 23658884 (Version 2)
Quarter: 2024Q2

REPORT INFORMATION
  Report Type: Report from Study
  Country: IN (occurrence: IN)
  Receive Date: 20240321
  Receipt Date: 20240626
  Transmission Date: 20240715
  Serious: Yes (Other)
  Sender: FDA-Public Use
  Company Number: IN-002147023-NVSC2024IN057131

PATIENT

DRUGS (1)
  1. RUXOLITINIB [Suspect]
     Active Substance: RUXOLITINIB
     Indication: Graft versus host disease
     Dosage: 5 MG, BID
     Route: 048
     Dates: start: 20231215

REACTIONS (7)
  - Weight decreased [Unknown]
  - Decreased appetite [Unknown]
  - Product dose omission issue [Unknown]
  - Mouth ulceration [Unknown]
  - Off label use [Unknown]
  - Aspartate aminotransferase abnormal [Unknown]
  - Alanine aminotransferase abnormal [Unknown]

NARRATIVE: CASE EVENT DATE: 20240112
